FAERS Safety Report 20356224 (Version 2)
Quarter: 2022Q1

REPORT INFORMATION
  Report Type: Spontaneous
  Country: US (occurrence: US)
  Receive Date: 20220120
  Receipt Date: 20220126
  Transmission Date: 20220423
  Serious: No
  Sender: FDA-Public Use
  Company Number: US-PFIZER INC-2021634486

PATIENT
  Age: 74 Year
  Sex: Female
  Weight: 95.238 kg

DRUGS (1)
  1. IBRANCE [Suspect]
     Active Substance: PALBOCICLIB
     Indication: Bone cancer
     Dosage: 100 MG, CYCLIC (100MG TABLET DAILY FOR 21 DAYS, AND THEN OFF FOR 7 DAYS)

REACTIONS (1)
  - Neoplasm progression [Unknown]
